FAERS Safety Report 7860035-3 (Version None)
Quarter: 2011Q4

REPORT INFORMATION
  Report Type: 
  Country: None (occurrence: None)
  Receive Date: 20111025
  Receipt Date: 20111019
  Transmission Date: 20120403
  Serious: Yes (Other)
  Sender: FDA-Public Use
  Company Number: AUR-APL-2011-05523

PATIENT
  Age: 60 Year
  Sex: Female

DRUGS (2)
  1. AMOXICILLIN [Suspect]
     Indication: TOOTH DISORDER
     Dosage: 500 MG (500 MG, 1 IN 1 D),
  2. METFORMIN HCL [Concomitant]

REACTIONS (1)
  - ANAPHYLACTIC SHOCK [None]
